FAERS Safety Report 7508397-0 (Version None)
Quarter: 2011Q2

REPORT INFORMATION
  Report Type: 
  Country: None (occurrence: None)
  Receive Date: 20110527
  Receipt Date: 20110517
  Transmission Date: 20111010
  Serious: Yes (Hospitalization)
  Sender: FDA-Public Use
  Company Number: US-NOVOPROD-328472

PATIENT
  Sex: Female

DRUGS (1)
  1. NOVOLIN 70/30 [Suspect]
     Indication: DIABETES MELLITUS
     Dosage: UNKNOWN
     Route: 058

REACTIONS (4)
  - PAIN IN EXTREMITY [None]
  - BLOOD GLUCOSE ABNORMAL [None]
  - ABSCESS [None]
  - ABDOMINAL PAIN UPPER [None]
